FAERS Safety Report 6970761-6 (Version None)
Quarter: 2010Q3

REPORT INFORMATION
  Report Type: 
  Country: None (occurrence: None)
  Receive Date: 20100908
  Receipt Date: 20100901
  Transmission Date: 20110219
  Serious: Yes (Hospitalization)
  Sender: FDA-Public Use
  Company Number: A0796488A

PATIENT
  Sex: Male
  Weight: 118.2 kg

DRUGS (12)
  1. AVANDIA [Suspect]
     Dosage: 8MG PER DAY
     Route: 048
     Dates: start: 20000101, end: 20070904
  2. INSULIN [Concomitant]
  3. CELEXA [Concomitant]
  4. PAXIL [Concomitant]
  5. ZOSTRIX [Concomitant]
  6. CLINORIL [Concomitant]
  7. TEGRETOL [Concomitant]
  8. PRILOSEC [Concomitant]
  9. VIAGRA [Concomitant]
  10. SPORANOX [Concomitant]
  11. ALLEGRA [Concomitant]
  12. SKELAXIN [Concomitant]

REACTIONS (2)
  - CARDIAC FAILURE CONGESTIVE [None]
  - CORONARY ARTERY OCCLUSION [None]
